FAERS Safety Report 6585515-2 (Version None)
Quarter: 2010Q1

REPORT INFORMATION
  Report Type: 
  Country: None (occurrence: None)
  Receive Date: 20100217
  Receipt Date: 20100211
  Transmission Date: 20100710
  Serious: Yes (Hospitalization)
  Sender: FDA-Public Use
  Company Number: FR-MERCK-1002FRA00049

PATIENT
  Age: 77 Year
  Sex: Male

DRUGS (2)
  1. NOROXIN [Suspect]
     Indication: PERITONEAL INFECTION
     Route: 048
     Dates: start: 20091001
  2. FLUINDIONE [Suspect]
     Indication: PORTAL VEIN THROMBOSIS
     Route: 048
     Dates: start: 20091201, end: 20091217

REACTIONS (2)
  - DRUG INTERACTION [None]
  - OVERDOSE [None]
